FAERS Safety Report 4456014-9 (Version None)
Quarter: 2004Q3

REPORT INFORMATION
  Report Type: 
  Country: None (occurrence: None)
  Receive Date: 20040922
  Receipt Date: 20031219
  Transmission Date: 20050211
  Serious: Yes (Other)
  Sender: FDA-Public Use
  Company Number: PHBS2003JP14431

PATIENT
  Age: 16 Year
  Sex: Male
  Weight: 44 kg

DRUGS (9)
  1. NEORAL [Suspect]
     Indication: RENAL TRANSPLANT
     Dosage: 375 MG/D
     Route: 048
     Dates: start: 20030809, end: 20030811
  2. NEORAL [Suspect]
     Dosage: 375 MG/D
     Route: 048
     Dates: start: 20030814
  3. SIMULECT [Suspect]
     Indication: RENAL TRANSPLANT
     Dosage: 20 MG/D
     Route: 042
     Dates: start: 20030812, end: 20030812
  4. SIMULECT [Suspect]
     Dosage: 20 MG/DAY
     Route: 042
     Dates: start: 20030816, end: 20030816
  5. CELLCEPT [Suspect]
     Indication: RENAL TRANSPLANT
     Dosage: 0.75-1.5 G/D
     Route: 048
     Dates: start: 20030809
  6. SANDIMMUNE [Suspect]
     Indication: RENAL TRANSPLANT
     Dosage: 125 MG/D
     Route: 042
     Dates: start: 20030812, end: 20030813
  7. SOLU-MEDROL [Concomitant]
     Indication: RENAL TRANSPLANT
     Dosage: 500 MG/D
     Route: 065
     Dates: start: 20030812, end: 20030812
  8. MEDROL [Concomitant]
     Indication: RENAL TRANSPLANT
     Dosage: 55 MG/D
     Route: 065
     Dates: start: 20030813
  9. ANAESTHETICS [Suspect]

REACTIONS (3)
  - BLOOD AMYLASE INCREASED [None]
  - CYTOMEGALOVIRUS ANTIGEN POSITIVE [None]
  - PANCREATITIS [None]
